FAERS Safety Report 4896778-3 (Version None)
Quarter: 2006Q1

REPORT INFORMATION
  Report Type: 
  Country: None (occurrence: None)
  Receive Date: 20060131
  Receipt Date: 20041108
  Transmission Date: 20060701
  Serious: Yes (Hospitalization)
  Sender: FDA-Public Use
  Company Number: PHBS2004FR15114

PATIENT
  Age: 40 Year
  Sex: Female

DRUGS (4)
  1. ESTROGENS CONJUGATED W/PROGESTERONE [Concomitant]
  2. PROPRANOLOL [Concomitant]
     Dosage: 40 MG, QID
     Route: 065
  3. METHYSERGIDE MALEATE [Suspect]
     Indication: HEADACHE
     Dosage: 1.65 MG, TID
     Route: 065
  4. DIHYDROERGOTAMINE MESYLATE [Suspect]
     Indication: MIGRAINE
     Dosage: 10 MG/D
     Route: 065

REACTIONS (17)
  - DIFFICULTY IN WALKING [None]
  - ELECTROMYOGRAM ABNORMAL [None]
  - ERGOT POISONING [None]
  - EXTENSOR PLANTAR RESPONSE [None]
  - FATIGUE [None]
  - HYPOAESTHESIA [None]
  - INTERMITTENT CLAUDICATION [None]
  - MUSCULAR WEAKNESS [None]
  - NERVE CONDUCTION STUDIES ABNORMAL [None]
  - PAIN IN EXTREMITY [None]
  - PALLOR [None]
  - PARAESTHESIA [None]
  - PEDAL PULSE ABSENT [None]
  - PERIPHERAL COLDNESS [None]
  - POPLITEAL PULSE DECREASED [None]
  - PULSE ABSENT [None]
  - SENSATION OF HEAVINESS [None]
